FAERS Safety Report 17570091 (Version 2)
Quarter: 2020Q2

REPORT INFORMATION
  Report Type: Spontaneous
  Country: EC (occurrence: EC)
  Receive Date: 20200323
  Receipt Date: 20200429
  Transmission Date: 20200713
  Serious: No
  Sender: FDA-Public Use
  Company Number: EC-AMGEN-ECUSP2020035683

PATIENT
  Age: 26 Year
  Sex: Male
  Weight: 65 kg

DRUGS (2)
  1. NPLATE [Suspect]
     Active Substance: ROMIPLOSTIM
     Indication: IMMUNE THROMBOCYTOPENIA
     Dosage: 250 MICROGRAM, Q2WK
     Route: 058
     Dates: start: 20180330
  2. NPLATE [Suspect]
     Active Substance: ROMIPLOSTIM
     Dosage: 0.5 MICROGRAM/KG, QWK
     Route: 058
     Dates: end: 20190920

REACTIONS (1)
  - Thrombocytosis [Recovered/Resolved]

NARRATIVE: CASE EVENT DATE: 20180422
